FAERS Safety Report 13462852 (Version 2)
Quarter: 2017Q2

REPORT INFORMATION
  Report Type: Spontaneous
  Country: US (occurrence: US)
  Receive Date: 20170420
  Receipt Date: 20170427
  Transmission Date: 20170830
  Serious: No
  Sender: FDA-Public Use
  Company Number: US-BIOMARINAP-US-2017-113673

PATIENT
  Age: 60 Year
  Sex: Female
  Weight: 85 kg

DRUGS (1)
  1. KUVAN [Suspect]
     Active Substance: SAPROPTERIN DIHYDROCHLORIDE
     Indication: PHENYLKETONURIA
     Dosage: 1500 MG, QD
     Route: 048
     Dates: start: 201205

REACTIONS (1)
  - Weight decreased [Unknown]

NARRATIVE: CASE EVENT DATE: 20170401
